FAERS Safety Report 5859928-8 (Version None)
Quarter: 2008Q3

REPORT INFORMATION
  Report Type: 
  Country: None (occurrence: None)
  Receive Date: 20080827
  Receipt Date: 20080821
  Transmission Date: 20090109
  Serious: Yes (Death)
  Sender: FDA-Public Use
  Company Number: US-GILEAD-2008-0017878

PATIENT
  Sex: Female
  Weight: 76.726 kg

DRUGS (11)
  1. LETAIRIS [Suspect]
     Indication: PULMONARY ARTERIAL HYPERTENSION
     Route: 048
     Dates: start: 20080229
  2. OXYGEN [Concomitant]
     Dosage: AS DIRECTED
     Route: 055
  3. PROCARDIA XL [Concomitant]
     Route: 048
  4. METOPROLOL TARTRATE [Concomitant]
     Route: 048
  5. CILOSTAZOL [Concomitant]
     Route: 048
  6. LIPITOR [Concomitant]
     Route: 048
  7. ASPIRIN [Concomitant]
     Route: 048
  8. HUMULIN R [Concomitant]
     Route: 058
  9. HUMULIN N [Concomitant]
     Route: 058
  10. SYNTHROID [Concomitant]
     Route: 048
  11. TEMAZEPAM [Concomitant]
     Route: 048

REACTIONS (1)
  - DEATH [None]
